APPROVED DRUG PRODUCT: TRIAMTERENE AND HYDROCHLOROTHIAZIDE
Active Ingredient: HYDROCHLOROTHIAZIDE; TRIAMTERENE
Strength: 25MG;37.5MG
Dosage Form/Route: TABLET;ORAL
Application: A073449 | Product #001 | TE Code: AB
Applicant: WATSON LABORATORIES INC
Approved: Sep 23, 1993 | RLD: No | RS: No | Type: RX